FAERS Safety Report 11031300 (Version 1)
Quarter: 2015Q2

REPORT INFORMATION
  Report Type: Spontaneous
  Country: BR (occurrence: None)
  Receive Date: 20150413
  Receipt Date: 20150413
  Transmission Date: 20150821
  Serious: Yes (Hospitalization)
  Sender: FDA-Public Use
  Company Number: PR 6970

PATIENT
  Age: 54 Year
  Sex: Male
  Weight: 80 kg

DRUGS (4)
  1. COSOPT [Suspect]
     Active Substance: DORZOLAMIDE HYDROCHLORIDE\TIMOLOL MALEATE
     Indication: GLAUCOMA
     Dosage: 1 DROP IN RIGHT EYE
     Dates: start: 1995
  2. LATANOPROST (LATANOPROST) (NONE) [Concomitant]
     Active Substance: LATANOPROST
  3. GARDENAL (PHENOBARBITAL) TABLET [Concomitant]
  4. ALPHAGAN P [Concomitant]
     Active Substance: BRIMONIDINE TARTRATE

REACTIONS (5)
  - Drug administration error [None]
  - Blindness unilateral [None]
  - Incorrect drug administration duration [None]
  - Meningioma [None]
  - Eye operation [None]

NARRATIVE: CASE EVENT DATE: 1995
